FAERS Safety Report 4662692-1 (Version None)
Quarter: 2005Q2

REPORT INFORMATION
  Report Type: 
  Country: None (occurrence: None)
  Receive Date: 20050516
  Receipt Date: 20050505
  Transmission Date: 20051028
  Serious: Yes (Other)
  Sender: FDA-Public Use
  Company Number: CA-GLAXOSMITHKLINE-A0557597A

PATIENT
  Age: 44 Year
  Sex: Male

DRUGS (7)
  1. LAMICTAL [Suspect]
     Indication: DRUG USE FOR UNKNOWN INDICATION
     Dosage: 25MG TWICE PER DAY
     Route: 048
  2. DESYREL [Concomitant]
  3. IMOVANE [Concomitant]
  4. OLANZAPINE [Concomitant]
  5. LITHIUM [Concomitant]
  6. PAXIL [Concomitant]
  7. PREVACID [Concomitant]

REACTIONS (12)
  - DERMATITIS BULLOUS [None]
  - DYSPHAGIA [None]
  - ERYTHEMA [None]
  - EYE DISCHARGE [None]
  - EYELID OEDEMA [None]
  - MUCOSA VESICLE [None]
  - PHARYNGOLARYNGEAL PAIN [None]
  - PRURITUS [None]
  - PYREXIA [None]
  - SKIN EXFOLIATION [None]
  - SKIN NECROSIS [None]
  - STEVENS-JOHNSON SYNDROME [None]
